FAERS Safety Report 4577386-0 (Version None)
Quarter: 2005Q1

REPORT INFORMATION
  Report Type: 
  Country: None (occurrence: None)
  Receive Date: 20050210
  Receipt Date: 20050208
  Transmission Date: 20050727
  Serious: Yes (Other)
  Sender: FDA-Public Use
  Company Number: 200404861

PATIENT
  Age: 84 Year
  Sex: Female

DRUGS (1)
  1. TAGAMET [Suspect]
     Route: 065

REACTIONS (1)
  - DELIRIUM [None]
